FAERS Safety Report 16389936 (Version 5)
Quarter: 2021Q3

REPORT INFORMATION
  Report Type: Spontaneous
  Country: US (occurrence: US)
  Receive Date: 20190604
  Receipt Date: 20210722
  Transmission Date: 20211014
  Serious: Yes (Other)
  Sender: FDA-Public Use
  Company Number: US-ASTRAZENECA-2018SF64787

PATIENT
  Age: 20324 Day
  Sex: Male
  Weight: 127 kg

DRUGS (41)
  1. NEXIUM [Suspect]
     Active Substance: ESOMEPRAZOLE MAGNESIUM
     Indication: GASTROOESOPHAGEAL REFLUX DISEASE
     Route: 048
     Dates: start: 20080121
  2. TRICOR [Concomitant]
     Active Substance: FENOFIBRATE
  3. VIAGRA [Concomitant]
     Active Substance: SILDENAFIL CITRATE
  4. DOXYCYCLINE. [Concomitant]
     Active Substance: DOXYCYCLINE
  5. BENADRYL [Concomitant]
     Active Substance: DIPHENHYDRAMINE HYDROCHLORIDE
     Indication: HYPERSENSITIVITY
  6. PREDNISONE. [Concomitant]
     Active Substance: PREDNISONE
  7. LOFIBRA [Concomitant]
     Active Substance: FENOFIBRATE
  8. WARFARIN [Concomitant]
     Active Substance: WARFARIN
  9. PRILOSEC [Suspect]
     Active Substance: OMEPRAZOLE MAGNESIUM
     Indication: GASTROOESOPHAGEAL REFLUX DISEASE
     Dosage: GENERIC
     Route: 065
     Dates: start: 2000, end: 2016
  10. PROTONIX [Suspect]
     Active Substance: PANTOPRAZOLE SODIUM
     Indication: GASTROOESOPHAGEAL REFLUX DISEASE
     Route: 065
     Dates: start: 1990, end: 2011
  11. MINOCYCLINE [Concomitant]
     Active Substance: MINOCYCLINE HYDROCHLORIDE
  12. WARFARIN [Concomitant]
     Active Substance: WARFARIN
  13. PREVACID [Suspect]
     Active Substance: LANSOPRAZOLE
     Indication: GASTROOESOPHAGEAL REFLUX DISEASE
     Route: 065
     Dates: start: 2016, end: 2017
  14. PREDNISONE. [Concomitant]
     Active Substance: PREDNISONE
  15. TRAMADOL. [Concomitant]
     Active Substance: TRAMADOL
     Indication: PAIN IN EXTREMITY
     Dates: start: 20180912
  16. UNISOM SLEEPTABS [Concomitant]
     Active Substance: DOXYLAMINE SUCCINATE
     Indication: SLEEP DISORDER
  17. BENICAR [Concomitant]
     Active Substance: OLMESARTAN MEDOXOMIL
  18. OLMESARTAN [Concomitant]
     Active Substance: OLMESARTAN
     Indication: BLOOD PRESSURE MEASUREMENT
     Dates: start: 20170812
  19. LOVASTATIN. [Concomitant]
     Active Substance: LOVASTATIN
     Indication: BLOOD CHOLESTEROL
     Dates: start: 20180903
  20. ZANTAC [Concomitant]
     Active Substance: RANITIDINE HYDROCHLORIDE
     Dosage: OTC, 75
     Dates: start: 2017, end: 2018
  21. ROLAIDS [Concomitant]
     Active Substance: CALCIUM CARBONATE\MAGNESIUM HYDROXIDE
     Dosage: OTC
     Dates: start: 1980, end: 1990
  22. NEXIUM [Suspect]
     Active Substance: ESOMEPRAZOLE MAGNESIUM
     Indication: GASTROOESOPHAGEAL REFLUX DISEASE
     Route: 048
     Dates: start: 20080121, end: 20110311
  23. NEXIUM [Suspect]
     Active Substance: ESOMEPRAZOLE MAGNESIUM
     Indication: GASTROOESOPHAGEAL REFLUX DISEASE
     Dosage: GENERIC
     Route: 065
     Dates: start: 2017
  24. PRILOSEC [Suspect]
     Active Substance: OMEPRAZOLE MAGNESIUM
     Indication: GASTROOESOPHAGEAL REFLUX DISEASE
     Route: 048
     Dates: start: 1990, end: 2011
  25. TEKTURNA [Concomitant]
     Active Substance: ALISKIREN HEMIFUMARATE
  26. SYNTHROID [Concomitant]
     Active Substance: LEVOTHYROXINE SODIUM
  27. PRILOSEC [Suspect]
     Active Substance: OMEPRAZOLE MAGNESIUM
     Indication: GASTROOESOPHAGEAL REFLUX DISEASE
     Route: 048
     Dates: start: 20121101, end: 2016
  28. PROTONIX [Suspect]
     Active Substance: PANTOPRAZOLE SODIUM
     Indication: GASTROOESOPHAGEAL REFLUX DISEASE
     Route: 065
     Dates: start: 2017, end: 2017
  29. DIOVAN [Concomitant]
     Active Substance: VALSARTAN
  30. FENOFIBRATE. [Concomitant]
     Active Substance: FENOFIBRATE
  31. NAPROXEN. [Concomitant]
     Active Substance: NAPROXEN
     Indication: PAIN
     Dates: start: 20170209
  32. PREVACID [Suspect]
     Active Substance: LANSOPRAZOLE
     Indication: GASTROOESOPHAGEAL REFLUX DISEASE
     Route: 065
     Dates: start: 1990, end: 2011
  33. INDOMETHACIN. [Concomitant]
     Active Substance: INDOMETHACIN
  34. FUROSEMIDE. [Concomitant]
     Active Substance: FUROSEMIDE
     Indication: PERIPHERAL SWELLING
     Dates: start: 20170724
  35. TAGAMET HB [Concomitant]
     Active Substance: CIMETIDINE
     Dosage: OTC
     Dates: start: 2017, end: 2018
  36. LEVOTHYROXINE. [Concomitant]
     Active Substance: LEVOTHYROXINE
  37. MEVACOR [Concomitant]
     Active Substance: LOVASTATIN
  38. NEXIUM [Suspect]
     Active Substance: ESOMEPRAZOLE MAGNESIUM
     Indication: GASTROOESOPHAGEAL REFLUX DISEASE
     Route: 048
     Dates: start: 1990, end: 2011
  39. PROTONIX [Suspect]
     Active Substance: PANTOPRAZOLE SODIUM
     Indication: GASTROOESOPHAGEAL REFLUX DISEASE
     Dosage: 1 TAB, ORAL, BEFORE BREAKFAST
     Route: 048
  40. LOSARTAN. [Concomitant]
     Active Substance: LOSARTAN
  41. VENTOLIN [Concomitant]
     Active Substance: ALBUTEROL SULFATE

REACTIONS (6)
  - Nephrogenic anaemia [Unknown]
  - Renal injury [Unknown]
  - Chronic kidney disease-mineral and bone disorder [Unknown]
  - Chronic kidney disease [Not Recovered/Not Resolved]
  - Renal failure [Unknown]
  - Acute kidney injury [Not Recovered/Not Resolved]

NARRATIVE: CASE EVENT DATE: 20170323
